FAERS Safety Report 6600426-1 (Version None)
Quarter: 2010Q1

REPORT INFORMATION
  Report Type: 
  Country: None (occurrence: None)
  Receive Date: 20100223
  Receipt Date: 20100223
  Transmission Date: 20100710
  Serious: No
  Sender: FDA-Public Use
  Company Number: None

PATIENT
  Age: 62 Year
  Sex: Female
  Weight: 104.5 kg

DRUGS (3)
  1. OMEPRAZOLE [Suspect]
     Indication: DYSPEPSIA
     Dosage: 40 MG DAY MOUTH
     Route: 048
     Dates: start: 20090101, end: 20090501
  2. HRT [Concomitant]
  3. LISINOPRIL/HCZT [Concomitant]

REACTIONS (4)
  - BURN OESOPHAGEAL [None]
  - JOINT DISLOCATION [None]
  - NO THERAPEUTIC RESPONSE [None]
  - SPINAL OSTEOARTHRITIS [None]
